FAERS Safety Report 20008653 (Version 1)
Quarter: 2021Q4

REPORT INFORMATION
  Report Type: Report from Study
  Country: CA (occurrence: CA)
  Receive Date: 20211029
  Receipt Date: 20211029
  Transmission Date: 20220303
  Serious: Yes (Other)
  Sender: FDA-Public Use
  Company Number: CA-BIOGEN-2021BI01062360

PATIENT
  Sex: Male

DRUGS (1)
  1. TECFIDERA [Suspect]
     Active Substance: DIMETHYL FUMARATE
     Indication: Relapsing-remitting multiple sclerosis
     Dosage: NOON AND BEFORE BED.
     Route: 048
     Dates: start: 20160805

REACTIONS (7)
  - Schizophrenia [Unknown]
  - Back disorder [Unknown]
  - Fatigue [Unknown]
  - Bipolar disorder [Unknown]
  - Mobility decreased [Unknown]
  - Somnolence [Unknown]
  - Hot flush [Unknown]
